FAERS Safety Report 18556834 (Version 1)
Quarter: 2020Q4

REPORT INFORMATION
  Report Type: Spontaneous
  Country: CA (occurrence: CA)
  Receive Date: 20201128
  Receipt Date: 20201128
  Transmission Date: 20210114
  Serious: Yes (Hospitalization, Other)
  Sender: FDA-Public Use
  Company Number: CA-TEVA-2020-CA-1851403

PATIENT
  Age: 60 Year
  Sex: Male

DRUGS (3)
  1. DIPHENHYDRAMINE. [Suspect]
     Active Substance: DIPHENHYDRAMINE
     Indication: ANXIOLYTIC THERAPY
     Dosage: FAMILY, REPORTED USE OF DIPHENHYDRAMINE 500MG OR MORE AT NIGHT FOR MORE THAN 10 YEARS; BASED ON T...
     Route: 065
  2. LORAZEPAM. [Suspect]
     Active Substance: LORAZEPAM
     Indication: PRODUCT USED FOR UNKNOWN INDICATION
     Dosage: SEIZURE DEVELOPED FOLLOWING ABRUPT DISCONTINUATION; LATER RESTARTED AND SUCCESSFULLY COMPLETED A ...
     Route: 065
  3. HYDROMORPHONE [Suspect]
     Active Substance: HYDROMORPHONE
     Indication: PRODUCT USED FOR UNKNOWN INDICATION
     Dosage: RAPIDLY ESCALATING DOSES OF ORAL HYDROMORPHONE AT HOME FOR A TWO-WEEK PERIOD; ORAL SUSTAINED-RELE...
     Route: 048

REACTIONS (16)
  - Myoclonus [Recovering/Resolving]
  - Intentional product misuse [Unknown]
  - Sedation [Recovering/Resolving]
  - Drug withdrawal syndrome [Unknown]
  - Confusional state [Recovering/Resolving]
  - Drug withdrawal convulsions [Recovered/Resolved]
  - Akathisia [Unknown]
  - Agitation [Recovered/Resolved]
  - Dysphagia [Unknown]
  - Delirium [Recovering/Resolving]
  - Muscle rigidity [Recovering/Resolving]
  - Toxicity to various agents [Recovering/Resolving]
  - Hyperhidrosis [Recovering/Resolving]
  - Psychotic disorder [Unknown]
  - Sinus tachycardia [Recovering/Resolving]
  - Withdrawal syndrome [Recovered/Resolved]
